FAERS Safety Report 13949899 (Version 1)
Quarter: 2017Q3

REPORT INFORMATION
  Report Type: Spontaneous
  Country: KR (occurrence: KR)
  Receive Date: 20170908
  Receipt Date: 20170908
  Transmission Date: 20171128
  Serious: Yes (Other)
  Sender: FDA-Public Use
  Company Number: KR-MALLINCKRODT-T201703657

PATIENT
  Age: 1 Day
  Sex: Female

DRUGS (2)
  1. INOMAX [Suspect]
     Active Substance: NITRIC OXIDE
     Indication: ATRIAL SEPTAL DEFECT
  2. INOMAX [Suspect]
     Active Substance: NITRIC OXIDE
     Indication: PERSISTENT FOETAL CIRCULATION
     Dosage: UNK
     Route: 065
     Dates: start: 20170624, end: 20170627

REACTIONS (3)
  - Convulsion neonatal [Recovered/Resolved]
  - Jaundice neonatal [Recovered/Resolved]
  - Hypotension [Recovered/Resolved]

NARRATIVE: CASE EVENT DATE: 20170624
